FAERS Safety Report 7755577-5 (Version None)
Quarter: 2011Q3

REPORT INFORMATION
  Report Type: 
  Country: None (occurrence: None)
  Receive Date: 20110914
  Receipt Date: 20110831
  Transmission Date: 20111222
  Serious: Yes (Other)
  Sender: FDA-Public Use
  Company Number: AUR-APL-2011-04952

PATIENT
  Age: 65 Year
  Sex: Male

DRUGS (5)
  1. BENDROFLUMETHIAZIDE (BENDROFLUMETHIAZIDE) [Concomitant]
  2. TAMSULOSIN HCL [Concomitant]
  3. TERBINAFINE HCL [Suspect]
     Indication: PRODUCT USED FOR UNKNOWN INDICATION
  4. PERINDOPRIL ERBUMINE [Concomitant]
  5. ATOVASTATIN CALCIUM) (ATOVASTATIN CALCIUM) [Concomitant]

REACTIONS (1)
  - HEPATITIS [None]
